FAERS Safety Report 6585968-X (Version None)
Quarter: 2010Q1

REPORT INFORMATION
  Report Type: 
  Country: None (occurrence: None)
  Receive Date: 20100216
  Receipt Date: 20100216
  Transmission Date: 20100710
  Serious: Yes (Hospitalization)
  Sender: FDA-Public Use
  Company Number: None

PATIENT
  Sex: Male
  Weight: 80 kg

DRUGS (1)
  1. HEPARIN [Suspect]
     Indication: ANGIOGRAM
     Dosage: 12000 UNITS IV
     Route: 042
     Dates: start: 20100124, end: 20100124

REACTIONS (1)
  - PRODUCT MEASURED POTENCY ISSUE [None]
